FAERS Safety Report 12699730 (Version 3)
Quarter: 2016Q4

REPORT INFORMATION
  Report Type: Report from Study
  Country: IE (occurrence: IE)
  Receive Date: 20160830
  Receipt Date: 20161223
  Transmission Date: 20170207
  Serious: Yes (Hospitalization, Other)
  Sender: FDA-Public Use
  Company Number: PHFR2016IE006945

PATIENT
  Age: 80 Year
  Sex: Female

DRUGS (13)
  1. ATROVENT HFA [Concomitant]
     Active Substance: IPRATROPIUM BROMIDE
     Indication: RESPIRATORY DISORDER
     Dosage: 1 DF (PUFF), QD
     Route: 055
  2. LYRICA [Concomitant]
     Active Substance: PREGABALIN
     Indication: ANXIETY
     Dosage: 50 MG, BID
     Route: 048
     Dates: start: 20160823
  3. ALDACTONE [Concomitant]
     Active Substance: SPIRONOLACTONE
     Indication: PRODUCT USED FOR UNKNOWN INDICATION
     Dosage: 25 MG, QD
     Route: 048
     Dates: start: 20160823
  4. BECLAZONE [Concomitant]
     Indication: RESPIRATORY DISORDER
     Dosage: 2 DF, BID (1-2 PUFFS, BID)
     Route: 055
     Dates: start: 20130319
  5. MICARDIS [Concomitant]
     Active Substance: TELMISARTAN
     Indication: HYPERTENSION
     Dosage: 80 MG, QD
     Route: 048
     Dates: start: 20160421
  6. CETRINE [Concomitant]
     Indication: HYPERSENSITIVITY
     Dosage: 10 MG, QD
     Route: 048
     Dates: start: 20160823
  7. VERSATIS [Concomitant]
     Active Substance: LIDOCAINE
     Indication: PAIN
     Dosage: 1 DF, QD
     Route: 061
     Dates: start: 20160823
  8. ULTIBRO BREEZHALER [Suspect]
     Active Substance: GLYCOPYRRONIUM\INDACATEROL
     Indication: RESPIRATORY DISORDER
     Dosage: 1 DF, UNK
     Route: 055
  9. CARDURAXL [Concomitant]
     Indication: HYPERTENSION
     Dosage: 4 MG, QD
     Route: 048
     Dates: start: 20120907
  10. PROTIUM [Concomitant]
     Indication: GASTRIC DISORDER
     Dosage: 20 MG, QD
     Route: 048
     Dates: start: 20130618
  11. STILNOCT [Concomitant]
     Active Substance: ZOLPIDEM TARTRATE
     Indication: INSOMNIA
     Dosage: 1.5 DF, QD
     Dates: start: 20130618
  12. SALAMOL//SALBUTAMOL [Concomitant]
     Indication: HYPERLIPIDAEMIA
     Dosage: 2 DF (PUFFS), QD
     Route: 055
     Dates: start: 20130219
  13. ALLOPURINOL. [Concomitant]
     Active Substance: ALLOPURINOL
     Indication: HYPERURICAEMIA
     Dosage: 100 MG, QD
     Route: 048
     Dates: start: 20130111

REACTIONS (9)
  - Dyspnoea [Unknown]
  - Product use issue [Unknown]
  - Joint swelling [Unknown]
  - Cough [Unknown]
  - Vaginal haemorrhage [Unknown]
  - Wheezing [Unknown]
  - Heart rate increased [Unknown]
  - Lower respiratory tract infection [Unknown]
  - Nasal congestion [Unknown]

NARRATIVE: CASE EVENT DATE: 20150910
